FAERS Safety Report 24405017 (Version 1)
Quarter: 2024Q4

REPORT INFORMATION
  Report Type: Spontaneous
  Country: US (occurrence: None)
  Receive Date: 20241005
  Receipt Date: 20241005
  Transmission Date: 20250115
  Serious: Yes (Other)
  Sender: Public
  Company Number: None

PATIENT
  Age: 63 Year
  Sex: Male

DRUGS (3)
  1. ABIRATERONE ACETATE [Suspect]
     Active Substance: ABIRATERONE ACETATE
     Indication: Prostate cancer
     Dosage: FREQUENCY : DAILY;?
  2. FIRMAGON [Suspect]
     Active Substance: DEGARELIX ACETATE
  3. XGEVA [Suspect]
     Active Substance: DENOSUMAB

REACTIONS (6)
  - Prostate cancer metastatic [None]
  - Metastases to lymph nodes [None]
  - Metastases to spine [None]
  - Fatigue [None]
  - Neck pain [None]
  - Abdominal pain upper [None]
